FAERS Safety Report 25299453 (Version 1)
Quarter: 2025Q2

REPORT INFORMATION
  Report Type: Spontaneous
  Country: US (occurrence: US)
  Receive Date: 20250512
  Receipt Date: 20250512
  Transmission Date: 20250717
  Serious: No
  Sender: GLAXOSMITHKLINE
  Company Number: US-GSK-US2025AMR051106

PATIENT
  Sex: Female
  Weight: 94 kg

DRUGS (3)
  1. NUCALA [Suspect]
     Active Substance: MEPOLIZUMAB
     Indication: Asthma
     Dosage: 300 MG, MO
     Route: 058
     Dates: start: 202309
  2. NUCALA [Suspect]
     Active Substance: MEPOLIZUMAB
     Indication: Asthma
     Dosage: 300 MG, MO
     Route: 058
  3. NUCALA [Suspect]
     Active Substance: MEPOLIZUMAB

REACTIONS (2)
  - Pain [Unknown]
  - Incorrect dose administered [Unknown]
